FAERS Safety Report 8766263 (Version 2)
Quarter: 2012Q4

REPORT INFORMATION
  Report Type: Report from Study
  Country: DE (occurrence: DE)
  Receive Date: 20120904
  Receipt Date: 20121031
  Transmission Date: 20130627
  Serious: No
  Sender: FDA-Public Use
  Company Number: DE-009507513-1208DEU010962

PATIENT

DRUGS (5)
  1. PEGINTERFERON ALFA-2B [Suspect]
     Indication: HEPATITIS C
     Dosage: 1000 mg, qd
     Route: 048
     Dates: start: 20060622, end: 20061031
  2. PEGINTERFERON ALFA-2B [Suspect]
     Dosage: UNK UNK, qd
     Route: 048
  3. REBETOL [Suspect]
     Indication: HEPATITIS C
     Dosage: 1 g, qd
     Route: 048
     Dates: start: 20060622
  4. REBETOL [Suspect]
     Dosage: 800 mg, qd
     Route: 048
     Dates: end: 20061031
  5. REBETOL [Suspect]
     Dosage: UNK
     Route: 048

REACTIONS (1)
  - Weight decreased [Recovered/Resolved]
